FAERS Safety Report 7092831-7 (Version None)
Quarter: 2010Q4

REPORT INFORMATION
  Report Type: 
  Country: None (occurrence: None)
  Receive Date: 20101110
  Receipt Date: 20101030
  Transmission Date: 20110411
  Serious: No
  Sender: FDA-Public Use
  Company Number: US-PFIZER INC-2010138273

PATIENT
  Sex: Male
  Weight: 86 kg

DRUGS (2)
  1. LIPITOR [Suspect]
     Indication: BLOOD CHOLESTEROL INCREASED
     Dosage: 10 MG, 1X/DAY
     Route: 048
     Dates: start: 20101001, end: 20101001
  2. METOPROLOL [Concomitant]
     Indication: HYPERTENSION
     Dosage: HALF PILL DAILY
     Dates: end: 20101001

REACTIONS (5)
  - BURNING SENSATION [None]
  - MUSCULAR WEAKNESS [None]
  - MYALGIA [None]
  - PAIN IN EXTREMITY [None]
  - PARAESTHESIA [None]
